FAERS Safety Report 15920181 (Version 1)
Quarter: 2019Q1

REPORT INFORMATION
  Report Type: Spontaneous
  Country: US (occurrence: US)
  Receive Date: 20190205
  Receipt Date: 20190205
  Transmission Date: 20190417
  Serious: No
  Sender: FDA-Public Use
  Company Number: US-PFIZER INC-2019044067

PATIENT
  Age: 75 Year
  Sex: Female
  Weight: 79.37 kg

DRUGS (10)
  1. PHENYTOIN. [Suspect]
     Active Substance: PHENYTOIN
     Dosage: UNK
  2. PSEUDOEPHEDRINE. [Suspect]
     Active Substance: PSEUDOEPHEDRINE HYDROCHLORIDE
     Dosage: UNK
  3. CIPRO [Suspect]
     Active Substance: CIPROFLOXACIN HYDROCHLORIDE
     Dosage: UNK
  4. BENADRYL [Suspect]
     Active Substance: DIPHENHYDRAMINE HYDROCHLORIDE
     Dosage: UNK
  5. CECLOR [Suspect]
     Active Substance: CEFACLOR
     Dosage: UNK
  6. DILTIAZEM HCL [Suspect]
     Active Substance: DILTIAZEM HYDROCHLORIDE
     Dosage: UNK
  7. DIATRIZOATE [Suspect]
     Active Substance: DIATRIZOATE MEGLUMINE
     Dosage: UNK
  8. DILANTIN [Suspect]
     Active Substance: PHENYTOIN
     Dosage: UNK
  9. SULFACETAMIDE SODIUM. [Suspect]
     Active Substance: SULFACETAMIDE SODIUM
     Dosage: UNK
  10. OPIUM. [Suspect]
     Active Substance: OPIUM
     Dosage: UNK

REACTIONS (1)
  - Drug hypersensitivity [Unknown]
